FAERS Safety Report 10562711 (Version 1)
Quarter: 2014Q4

REPORT INFORMATION
  Report Type: Spontaneous
  Country: US (occurrence: None)
  Receive Date: 20141103
  Receipt Date: 20141103
  Transmission Date: 20150529
  Serious: No
  Sender: FDA-Public Use
  Company Number: None

PATIENT
  Sex: Male
  Weight: 101.61 kg

DRUGS (2)
  1. FINASTERIDE. [Suspect]
     Active Substance: FINASTERIDE
     Indication: PROSTATOMEGALY
     Dosage: 5 MG ?ONE PILL DAILY?ONE DAILY?MY MOUTH ?THERAPU ?6-14-2013?9-MONTH-014
     Route: 048
     Dates: start: 20130614
  2. FINASTERIDE. [Suspect]
     Active Substance: FINASTERIDE
     Dosage: 5 MG ?ONE PILL DAILY?ONE DAILY?MY MOUTH ?THERAPU ?6-14-2013?9-MONTH-014
     Route: 048
     Dates: start: 20130614

REACTIONS (7)
  - Nipple pain [None]
  - Breast tenderness [None]
  - Depression [None]
  - Dyspnoea [None]
  - Gynaecomastia [None]
  - Breast pain [None]
  - Pruritus [None]
